FAERS Safety Report 5273106-5 (Version None)
Quarter: 2007Q1

REPORT INFORMATION
  Report Type: 
  Country: None (occurrence: None)
  Receive Date: 20070316
  Receipt Date: 20070307
  Transmission Date: 20070707
  Serious: Yes (Other)
  Sender: FDA-Public Use
  Company Number: 237908

PATIENT
  Age: 38 Year
  Sex: Female

DRUGS (6)
  1. XOLAIR [Suspect]
     Indication: ASTHMA
     Dates: start: 20070116
  2. OXIS (FORMOTEROL FUMARATE) [Concomitant]
  3. SERETIDE (FLUTICASONE PROPIONATE, SALMETEROL XINAFOATE) [Concomitant]
  4. SALMETEROL (SALMETEROL) [Concomitant]
  5. VENTOLIN (ALBUTEROL/ALBUTEROL SULFATE) [Concomitant]
  6. LORAZEPAM [Concomitant]

REACTIONS (2)
  - INFLUENZA [None]
  - VERTIGO [None]
